FAERS Safety Report 9244563 (Version 2)
Quarter: 2013Q2

REPORT INFORMATION
  Report Type: Spontaneous
  Country: AU (occurrence: AU)
  Receive Date: 20130422
  Receipt Date: 20130502
  Transmission Date: 20140414
  Serious: Yes (Other)
  Sender: FDA-Public Use
  Company Number: AU-JNJFOC-20130402511

PATIENT
  Sex: Female
  Weight: 56 kg

DRUGS (2)
  1. DOXORUBICIN HYDROCHLORIDE (CAELYX) [Suspect]
     Indication: OVARIAN CANCER
     Dosage: 4/52
     Route: 042
     Dates: start: 20130206, end: 20130305
  2. DOXORUBICIN HYDROCHLORIDE (CAELYX) [Suspect]
     Indication: OVARIAN CANCER
     Route: 042

REACTIONS (3)
  - Rash [Recovered/Resolved]
  - Excoriation [Unknown]
  - Skin haemorrhage [Unknown]
